FAERS Safety Report 21455314 (Version 1)
Quarter: 2022Q4

REPORT INFORMATION
  Report Type: Spontaneous
  Country: US (occurrence: US)
  Receive Date: 20221014
  Receipt Date: 20221014
  Transmission Date: 20230112
  Serious: No
  Sender: FDA-Public Use
  Company Number: US-SA-SAC20221010001137

PATIENT
  Age: 38 Year
  Sex: Female
  Weight: 56.6 kg

DRUGS (5)
  1. DUPIXENT [Suspect]
     Active Substance: DUPILUMAB
     Indication: Dermatitis
     Dosage: 300 MG, QOW
     Route: 058
     Dates: start: 20220708
  2. IBUPROFEN [Concomitant]
     Active Substance: IBUPROFEN
  3. PERMETHRIN [Concomitant]
     Active Substance: PERMETHRIN
  4. METRONIDAZOLE [Concomitant]
     Active Substance: METRONIDAZOLE
  5. TRIAMCINOLONE ACETONIDE [Concomitant]
     Active Substance: TRIAMCINOLONE ACETONIDE

REACTIONS (2)
  - Dermatitis [Not Recovered/Not Resolved]
  - Product use in unapproved indication [Unknown]

NARRATIVE: CASE EVENT DATE: 20220701
